FAERS Safety Report 8723176 (Version 2)
Quarter: 2012Q4

REPORT INFORMATION
  Report Type: Report from Study
  Country: JP (occurrence: JP)
  Receive Date: 20120814
  Receipt Date: 20121024
  Transmission Date: 20130627
  Serious: Yes (Other)
  Sender: FDA-Public Use
  Company Number: JP-ROCHE-1099991

PATIENT
  Age: 67 Year
  Sex: Female

DRUGS (35)
  1. TOCILIZUMAB [Suspect]
     Indication: RHEUMATOID ARTHRITIS
     Route: 041
     Dates: start: 20080902, end: 20080902
  2. TOCILIZUMAB [Suspect]
     Indication: RHEUMATOID ARTHRITIS
     Route: 041
     Dates: start: 20081007, end: 20081007
  3. TOCILIZUMAB [Suspect]
     Indication: RHEUMATOID ARTHRITIS
     Route: 041
     Dates: start: 20081113, end: 20081113
  4. TOCILIZUMAB [Suspect]
     Indication: RHEUMATOID ARTHRITIS
     Route: 041
     Dates: start: 20081216, end: 20081216
  5. TOCILIZUMAB [Suspect]
     Indication: RHEUMATOID ARTHRITIS
     Route: 041
     Dates: start: 20090113, end: 20090113
  6. TOCILIZUMAB [Suspect]
     Indication: RHEUMATOID ARTHRITIS
     Route: 041
     Dates: start: 20090210, end: 20090210
  7. TOCILIZUMAB [Suspect]
     Indication: RHEUMATOID ARTHRITIS
     Route: 041
     Dates: start: 20090309, end: 20090309
  8. TOCILIZUMAB [Suspect]
     Indication: RHEUMATOID ARTHRITIS
     Route: 041
     Dates: start: 20090406, end: 20090406
  9. TOCILIZUMAB [Suspect]
     Indication: RHEUMATOID ARTHRITIS
     Route: 041
     Dates: start: 20090507, end: 20090507
  10. TOCILIZUMAB [Suspect]
     Indication: RHEUMATOID ARTHRITIS
     Route: 041
     Dates: start: 20090601, end: 20090601
  11. TOCILIZUMAB [Suspect]
     Indication: RHEUMATOID ARTHRITIS
     Route: 041
     Dates: start: 20090629, end: 20090629
  12. TOCILIZUMAB [Suspect]
     Indication: RHEUMATOID ARTHRITIS
     Route: 041
     Dates: start: 20090803, end: 20090803
  13. TOCILIZUMAB [Suspect]
     Indication: RHEUMATOID ARTHRITIS
     Route: 041
     Dates: start: 20090831, end: 20090831
  14. TOCILIZUMAB [Suspect]
     Indication: RHEUMATOID ARTHRITIS
     Route: 041
     Dates: start: 20090928, end: 20090928
  15. TOCILIZUMAB [Suspect]
     Indication: RHEUMATOID ARTHRITIS
     Route: 041
     Dates: start: 20091026, end: 20091026
  16. TOCILIZUMAB [Suspect]
     Indication: RHEUMATOID ARTHRITIS
     Route: 041
     Dates: start: 20091120, end: 20091120
  17. TOCILIZUMAB [Suspect]
     Indication: RHEUMATOID ARTHRITIS
     Route: 041
     Dates: start: 20091221, end: 20091221
  18. BREDININ [Concomitant]
     Route: 048
     Dates: start: 20080722, end: 20080728
  19. BREDININ [Concomitant]
     Route: 048
     Dates: start: 20080729, end: 20081127
  20. PREDONINE [Concomitant]
     Indication: RHEUMATOID ARTHRITIS
     Route: 048
     Dates: end: 20080915
  21. PREDONINE [Concomitant]
     Indication: RHEUMATOID ARTHRITIS
     Route: 048
     Dates: start: 20080916, end: 20081013
  22. PREDONINE [Concomitant]
     Indication: RHEUMATOID ARTHRITIS
     Route: 048
     Dates: start: 20081014, end: 20081112
  23. PREDONINE [Concomitant]
     Indication: RHEUMATOID ARTHRITIS
     Route: 048
     Dates: start: 20081113, end: 20081216
  24. PREDONINE [Concomitant]
     Indication: RHEUMATOID ARTHRITIS
     Route: 048
     Dates: start: 20081217, end: 20090113
  25. PREDONINE [Concomitant]
     Indication: RHEUMATOID ARTHRITIS
     Route: 048
     Dates: start: 20090114, end: 20090309
  26. PREDONINE [Concomitant]
     Indication: RHEUMATOID ARTHRITIS
     Route: 048
  27. ISCOTIN [Concomitant]
     Indication: ANTIBIOTIC PROPHYLAXIS
     Route: 048
  28. BONALON [Concomitant]
     Indication: PROPHYLAXIS
     Dosage: Drug reported as: BONALON 35 mg
     Route: 048
  29. GLAKAY [Concomitant]
     Indication: PROPHYLAXIS
     Route: 048
  30. GLAKAY [Concomitant]
     Indication: PROPHYLAXIS
     Route: 048
  31. OLMETEC [Concomitant]
     Route: 048
  32. ALOSITOL [Concomitant]
     Route: 048
  33. CONIEL [Concomitant]
     Route: 048
  34. KREMEZIN [Concomitant]
     Route: 048
  35. LIVALO [Concomitant]
     Route: 048

REACTIONS (4)
  - Papillary thyroid cancer [Recovering/Resolving]
  - Vocal cord paralysis [Recovered/Resolved]
  - Synovial disorder [Recovering/Resolving]
  - Tendon injury [Recovering/Resolving]
